FAERS Safety Report 20215019 (Version 1)
Quarter: 2021Q4

REPORT INFORMATION
  Report Type: Spontaneous
  Country: US (occurrence: US)
  Receive Date: 20211222
  Receipt Date: 20211222
  Transmission Date: 20220303
  Serious: No
  Sender: FDA-Public Use
  Company Number: US-MTPC-MTDA2021-0031034

PATIENT
  Sex: Female

DRUGS (1)
  1. RADICAVA [Suspect]
     Active Substance: EDARAVONE
     Indication: Amyotrophic lateral sclerosis
     Dosage: STANDARD DOSING BUT CALLER REPORTS SHE RECEIVES HER INFUSION OVER 30-35 MINUTES RATHER THAN 60 MINUT
     Route: 065

REACTIONS (4)
  - Musculoskeletal stiffness [Unknown]
  - Nervousness [Unknown]
  - Dry throat [Unknown]
  - Incorrect product administration duration [Unknown]
